FAERS Safety Report 7682726-X (Version None)
Quarter: 2011Q3

REPORT INFORMATION
  Report Type: 
  Country: None (occurrence: None)
  Receive Date: 20110810
  Receipt Date: 20110803
  Transmission Date: 20111222
  Serious: Yes (Other)
  Sender: FDA-Public Use
  Company Number: 2011SP036928

PATIENT
  Age: 50 Year
  Sex: Female
  Weight: 56 kg

DRUGS (2)
  1. CLONAZEPAM [Concomitant]
  2. REMERON [Suspect]
     Indication: DEPRESSION
     Dosage: 30 MG;QD;PO
     Route: 048
     Dates: start: 20110620

REACTIONS (4)
  - ABDOMINAL PAIN UPPER [None]
  - INCREASED APPETITE [None]
  - URINARY TRACT INFECTION [None]
  - WEIGHT INCREASED [None]
